FAERS Safety Report 25681298 (Version 1)
Quarter: 2025Q3

REPORT INFORMATION
  Report Type: Spontaneous
  Country: US (occurrence: None)
  Receive Date: 20250813
  Receipt Date: 20250813
  Transmission Date: 20251021
  Serious: No
  Sender: FDA-CTU
  Company Number: None

PATIENT
  Sex: Male

DRUGS (17)
  1. INBRIJA [Suspect]
     Active Substance: LEVODOPA
     Indication: Parkinson^s disease
     Dosage: FREQUENCY : 3 TIMES A DAY;?
     Route: 055
     Dates: start: 20250429, end: 20250801
  2. INBRIJA [Suspect]
     Active Substance: LEVODOPA
     Indication: Freezing phenomenon
  3. ATORVASTATIN 80MG TABLETS [Concomitant]
  4. CARBIDOPA/LEVOD 25-100MG [Concomitant]
  5. FLUDROCORTISONE 0.1MG TABLETS [Concomitant]
  6. METOPROLOL SUCCINATE [Concomitant]
     Active Substance: METOPROLOL SUCCINATE
  7. MYRBETRIQ 50MG ER TABLETS [Concomitant]
  8. PANTOPRAZOLE [Concomitant]
     Active Substance: PANTOPRAZOLE
  9. PYRIDOSTIGMINE 60MG TABLETS [Concomitant]
  10. RIVASTIGMINE 3MG CAPSULES [Concomitant]
  11. VENLAFAXINE 37.5MG TABLETS [Concomitant]
  12. ALPRAZOLAM [Concomitant]
     Active Substance: ALPRAZOLAM
  13. AMANTADINE [Concomitant]
     Active Substance: AMANTADINE
  14. ASPIRIN 81MG EC LOW DOSE TABLETS [Concomitant]
  15. LINZESS [Concomitant]
     Active Substance: LINACLOTIDE
  16. MAGNESIUM 500MG TABLETS [Concomitant]
  17. TAMSULOSIN [Concomitant]
     Active Substance: TAMSULOSIN

REACTIONS (2)
  - Hospice care [None]
  - Therapy cessation [None]
